FAERS Safety Report 8881603 (Version 2)
Quarter: 2012Q4

REPORT INFORMATION
  Report Type: 
  Country: JP (occurrence: JP)
  Receive Date: 20121101
  Receipt Date: 20121112
  Transmission Date: 20130627
  Serious: Yes (Hospitalization, Other)
  Sender: FDA-Public Use
  Company Number: JP-BRISTOL-MYERS SQUIBB COMPANY-17055997

PATIENT
  Age: 60 Year
  Sex: Female

DRUGS (6)
  1. BARACLUDE TABS 0.5 MG [Suspect]
     Indication: HEPATITIS B
     Route: 048
     Dates: start: 20120917, end: 20121016
  2. DEXART [Concomitant]
     Dosage: 03Oct12-06Oct12
11Oct12 and 14Oct12
     Route: 042
     Dates: start: 20121003, end: 20121014
  3. PREDONINE [Concomitant]
  4. OXYCONTIN [Concomitant]
  5. MAGMITT [Concomitant]
  6. TAKEPRON [Concomitant]

REACTIONS (4)
  - Compression fracture [Unknown]
  - Plasmacytoma [Unknown]
  - Metastases to bone [Unknown]
  - Pancreatitis acute [Not Recovered/Not Resolved]
